FAERS Safety Report 4578704-X (Version None)
Quarter: 2005Q1

REPORT INFORMATION
  Report Type: 
  Country: None (occurrence: None)
  Receive Date: 20050211
  Receipt Date: 20050204
  Transmission Date: 20050727
  Serious: Yes (Hospitalization)
  Sender: FDA-Public Use
  Company Number: PHBS2005NZ01941

PATIENT
  Age: 20 Year
  Sex: Female

DRUGS (2)
  1. CLOZARIL [Suspect]
     Indication: SCHIZOPHRENIA
     Dosage: 100 MG/D
     Route: 048
     Dates: start: 20050204
  2. CLOZARIL [Suspect]
     Dosage: 100 MG/D
     Route: 048
     Dates: start: 20050107, end: 20050122

REACTIONS (5)
  - C-REACTIVE PROTEIN INCREASED [None]
  - CHEST PAIN [None]
  - PLEURISY VIRAL [None]
  - PYREXIA [None]
  - THROMBOCYTOPENIA [None]
